FAERS Safety Report 23896173 (Version 2)
Quarter: 2024Q2

REPORT INFORMATION
  Report Type: Spontaneous
  Country: GB (occurrence: GB)
  Receive Date: 20240524
  Receipt Date: 20240529
  Transmission Date: 20240716
  Serious: No
  Sender: FDA-Public Use
  Company Number: GB-PFIZER INC-PV202400065535

PATIENT
  Age: 2 Year
  Sex: Female

DRUGS (1)
  1. GENOTROPIN [Suspect]
     Active Substance: SOMATROPIN
     Indication: Hypopituitarism
     Dosage: 0.4 MG, 1X/DAY
     Route: 058
     Dates: start: 20220826

REACTIONS (5)
  - Device breakage [Unknown]
  - Device mechanical issue [Unknown]
  - Needle issue [Unknown]
  - Injection site pain [Unknown]
  - Injection site bruising [Unknown]
